FAERS Safety Report 5411926-4 (Version None)
Quarter: 2007Q3

REPORT INFORMATION
  Report Type: 
  Country: None (occurrence: None)
  Receive Date: 20070813
  Receipt Date: 20070807
  Transmission Date: 20080115
  Serious: No
  Sender: FDA-Public Use
  Company Number: CA-ELI_LILLY_AND_COMPANY-CA200708001891

PATIENT
  Sex: Male

DRUGS (3)
  1. CIALIS [Suspect]
     Indication: ERECTILE DYSFUNCTION
     Dosage: 20 MG, DAILY (1/D)
     Route: 048
     Dates: start: 20050801
  2. CIALIS [Suspect]
     Dosage: 20 MG, 2/D
     Route: 048
  3. MORPHINE [Concomitant]

REACTIONS (3)
  - DRUG EFFECT DECREASED [None]
  - INTENTIONAL OVERDOSE [None]
  - VISION BLURRED [None]
